FAERS Safety Report 7183443-5 (Version None)
Quarter: 2010Q4

REPORT INFORMATION
  Report Type: 
  Country: None (occurrence: None)
  Receive Date: 20101222
  Receipt Date: 20101217
  Transmission Date: 20110411
  Serious: Yes (Hospitalization)
  Sender: FDA-Public Use
  Company Number: CA-ABBOTT-10P-028-0654295-00

PATIENT
  Sex: Male

DRUGS (1)
  1. HUMIRA [Suspect]
     Indication: RHEUMATOID ARTHRITIS
     Route: 058
     Dates: start: 20080404

REACTIONS (5)
  - ARTHRITIS [None]
  - DRUG EFFECT DECREASED [None]
  - GAIT DISTURBANCE [None]
  - MOBILITY DECREASED [None]
  - PAIN [None]
